FAERS Safety Report 6115572-9 (Version None)
Quarter: 2009Q1

REPORT INFORMATION
  Report Type: 
  Country: None (occurrence: None)
  Receive Date: 20090313
  Receipt Date: 20090310
  Transmission Date: 20090719
  Serious: Yes (Other)
  Sender: FDA-Public Use
  Company Number: PHEH2009US01404

PATIENT
  Sex: Female

DRUGS (1)
  1. DIOVAN [Suspect]
     Indication: HYPERTENSION
     Dosage: 160 MG, QD
     Route: 048
     Dates: start: 20070101

REACTIONS (4)
  - EXOSTOSIS [None]
  - HIP ARTHROPLASTY [None]
  - HIP FRACTURE [None]
  - OSTEOARTHRITIS [None]
